FAERS Safety Report 5977409-8 (Version None)
Quarter: 2008Q4

REPORT INFORMATION
  Report Type: 
  Country: None (occurrence: None)
  Receive Date: 20081203
  Receipt Date: 20081125
  Transmission Date: 20090506
  Serious: Yes (Hospitalization)
  Sender: FDA-Public Use
  Company Number: JP-EISAI MEDICAL RESEARCH-E2090-00584-SPO-JP

PATIENT
  Sex: Male

DRUGS (7)
  1. EXCEGRAN [Suspect]
     Indication: EPILEPSY
     Route: 048
     Dates: start: 20080704, end: 20080820
  2. DIOVAN [Concomitant]
     Route: 048
  3. RANITAC [Concomitant]
     Indication: ANGINA PECTORIS
     Route: 048
  4. ASPIRIN [Concomitant]
     Indication: ANGINA PECTORIS
     Route: 048
  5. PANALDINE [Concomitant]
     Indication: ANGINA PECTORIS
     Route: 048
  6. LIPITOR [Concomitant]
     Route: 048
  7. NITOROL R [Concomitant]
     Indication: ANGINA PECTORIS
     Route: 048

REACTIONS (2)
  - ERYTHEMA MULTIFORME [None]
  - INTERSTITIAL LUNG DISEASE [None]
